FAERS Safety Report 5838622-3 (Version None)
Quarter: 2008Q3

REPORT INFORMATION
  Report Type: 
  Country: None (occurrence: None)
  Receive Date: 20080808
  Receipt Date: 20080623
  Transmission Date: 20090109
  Serious: No
  Sender: FDA-Public Use
  Company Number: A0732444A

PATIENT
  Age: 60 Year
  Sex: Female
  Weight: 68.2 kg

DRUGS (1)
  1. ALTABAX [Suspect]
     Indication: WOUND
     Dosage: 10MG PER DAY
     Route: 061
     Dates: start: 20080516, end: 20080517

REACTIONS (4)
  - INCISION SITE COMPLICATION [None]
  - INSOMNIA [None]
  - PAIN [None]
  - PROCEDURAL PAIN [None]
